FAERS Safety Report 6905832-3 (Version None)
Quarter: 2010Q3

REPORT INFORMATION
  Report Type: 
  Country: None (occurrence: None)
  Receive Date: 20100804
  Receipt Date: 20100728
  Transmission Date: 20110219
  Serious: Yes (Death, Hospitalization, Other)
  Sender: FDA-Public Use
  Company Number: US-ROCHE-712675

PATIENT
  Sex: Female
  Weight: 112 kg

DRUGS (6)
  1. BEVACIZUMAB [Suspect]
     Dosage: SINGLE DOSE
     Route: 042
     Dates: start: 20091208
  2. BEVACIZUMAB [Suspect]
     Route: 042
     Dates: start: 20100105
  3. ERLOTINIB [Suspect]
     Dosage: DOSE: 100 MG DAILY FREQUENCY:  DAY 5-21 OF 28 DAYS CYCLE
     Route: 065
     Dates: start: 20090621, end: 20091123
  4. BENDAMUSTINE [Suspect]
     Dosage: DOSE: (188.4- 194.0 MG) FREQUENCY: DAY 1-2 OF 28 DAY CYCLE ROUTE: INTRAVENOUS NOT OTHERWISE SPECIFIE
     Route: 042
     Dates: start: 20090616, end: 20091104
  5. PACLITAXEL [Suspect]
     Route: 042
     Dates: start: 20091208
  6. PACLITAXEL [Suspect]
     Route: 042
     Dates: start: 20100105

REACTIONS (11)
  - DEATH [None]
  - DISEASE PROGRESSION [None]
  - DYSPNOEA [None]
  - DYSPNOEA EXERTIONAL [None]
  - FATIGUE [None]
  - LYMPHOPENIA [None]
  - PERTUSSIS [None]
  - PNEUMOCYSTIS JIROVECI INFECTION [None]
  - PNEUMONIA [None]
  - PULMONARY OEDEMA [None]
  - TRANSAMINASES INCREASED [None]
